FAERS Safety Report 8771184 (Version 1)
Quarter: 2012Q4

REPORT INFORMATION
  Report Type: 
  Country: US (occurrence: US)
  Receive Date: 20120906
  Receipt Date: 20120906
  Transmission Date: 20130627
  Serious: Yes (Other)
  Sender: FDA-Public Use
  Company Number: US-PFIZER INC-2012218590

PATIENT
  Age: 20 Year

DRUGS (1)
  1. DOXEPIN HCL [Suspect]

REACTIONS (1)
  - Toxicity to various agents [Unknown]
